FAERS Safety Report 6853910-X (Version None)
Quarter: 2010Q3

REPORT INFORMATION
  Report Type: 
  Country: None (occurrence: None)
  Receive Date: 20100717
  Receipt Date: 20071223
  Transmission Date: 20110219
  Serious: No
  Sender: FDA-Public Use
  Company Number: US-PFIZER INC-2007107887

PATIENT
  Sex: Female
  Weight: 70.9 kg

DRUGS (11)
  1. CHANTIX [Suspect]
     Indication: SMOKING CESSATION THERAPY
     Dates: start: 20071212
  2. ALL OTHER THERAPEUTIC PRODUCTS [Concomitant]
  3. HYDROCHLOROTHIAZIDE [Concomitant]
  4. TOPROL-XL [Concomitant]
  5. CRESTOR [Concomitant]
  6. MOBIC [Concomitant]
  7. TRAMADOL [Concomitant]
  8. XANAX [Concomitant]
  9. ACETYLSALICYLIC ACID [Concomitant]
  10. CALCIUM [Concomitant]
  11. VITAMINS [Concomitant]

REACTIONS (1)
  - VOMITING [None]
